FAERS Safety Report 17863519 (Version 1)
Quarter: 2020Q2

REPORT INFORMATION
  Report Type: Spontaneous
  Country: DK (occurrence: DK)
  Receive Date: 20200604
  Receipt Date: 20200604
  Transmission Date: 20200714
  Serious: Yes (Death, Life-Threatening)
  Sender: FDA-Public Use
  Company Number: NVSC2020DK156222

PATIENT
  Age: 38 Year
  Sex: Female

DRUGS (2)
  1. CORDAN (AMIODARONE HYDROCHLORIDE) [Suspect]
     Active Substance: AMIODARONE HYDROCHLORIDE
     Indication: CARDIOMYOPATHY
     Dosage: 200 MG, QD (STYRKE: 200 MG)
     Route: 048
     Dates: start: 20141124
  2. CLOPIXOL [Suspect]
     Active Substance: ZUCLOPENTHIXOL
     Indication: SCHIZOPHRENIA
     Dosage: 20 MG, QD (STYRKE: 10 MG)
     Route: 048
     Dates: start: 20190318

REACTIONS (2)
  - Cardiac failure [Fatal]
  - Electrocardiogram QT prolonged [Fatal]

NARRATIVE: CASE EVENT DATE: 20190718
